FAERS Safety Report 9814263 (Version 2)
Quarter: 2014Q2

REPORT INFORMATION
  Report Type: Spontaneous
  Country: US (occurrence: US)
  Receive Date: 20140113
  Receipt Date: 20140408
  Transmission Date: 20141212
  Serious: No
  Sender: FDA-Public Use
  Company Number: US-ASTELLAS-2013US013007

PATIENT
  Age: 62 Year
  Sex: Male

DRUGS (4)
  1. MYRBETRIQ [Suspect]
     Indication: HYPERTONIC BLADDER
     Dosage: 25 MG, UNKNOWN/D
     Route: 065
     Dates: start: 20131209
  2. COUMADIN                           /00014802/ [Concomitant]
     Indication: PRODUCT USED FOR UNKNOWN INDICATION
     Dosage: UNK
     Route: 065
  3. VYTORIN [Concomitant]
     Indication: PRODUCT USED FOR UNKNOWN INDICATION
     Dosage: UNK
     Route: 065
  4. ATENOLOL [Concomitant]
     Indication: PRODUCT USED FOR UNKNOWN INDICATION
     Dosage: UNK
     Route: 065

REACTIONS (4)
  - Drug ineffective [Unknown]
  - Epistaxis [Unknown]
  - Headache [Unknown]
  - Pruritus [Recovered/Resolved]
